FAERS Safety Report 5006674-9 (Version None)
Quarter: 2006Q2

REPORT INFORMATION
  Report Type: 
  Country: None (occurrence: None)
  Receive Date: 20060519
  Receipt Date: 20060508
  Transmission Date: 20061013
  Serious: Yes (Hospitalization)
  Sender: FDA-Public Use
  Company Number: DE-ROCHE-447115

PATIENT
  Age: 65 Year
  Sex: Female

DRUGS (7)
  1. ZENAPAX [Suspect]
     Route: 042
     Dates: start: 20040906, end: 20040906
  2. ZENAPAX [Suspect]
     Dosage: FOR FOUR DOSES
     Route: 042
  3. MYCOPHENOLATE MOFETIL [Suspect]
     Route: 048
     Dates: start: 20040906
  4. TACROLIMUS [Suspect]
     Route: 048
     Dates: start: 20040906
  5. CORTICOSTEROIDS [Suspect]
     Route: 048
     Dates: start: 20040906
  6. CORTICOSTEROIDS [Suspect]
     Dosage: DRUG NAME REPORTED AS 'STEROIDE'
     Route: 048
     Dates: start: 20040117
  7. MYFORTIC [Concomitant]
     Dates: start: 20050307

REACTIONS (2)
  - BRONCHITIS [None]
  - DIARRHOEA [None]
